FAERS Safety Report 15314890 (Version 3)
Quarter: 2018Q3

REPORT INFORMATION
  Report Type: Spontaneous
  Country: DE (occurrence: DE)
  Receive Date: 20180824
  Receipt Date: 20180912
  Transmission Date: 20181010
  Serious: No
  Sender: FDA-Public Use
  Company Number: DE-JNJFOC-20180820048

PATIENT

DRUGS (2)
  1. IBUPROFEN. [Suspect]
     Active Substance: IBUPROFEN
     Route: 048
  2. IBUPROFEN. [Suspect]
     Active Substance: IBUPROFEN
     Indication: ALLERGY TEST
     Route: 048

REACTIONS (3)
  - Off label use [Unknown]
  - Urticaria [Unknown]
  - Product use in unapproved indication [Unknown]
